FAERS Safety Report 7622823-8 (Version None)
Quarter: 2011Q3

REPORT INFORMATION
  Report Type: 
  Country: None (occurrence: None)
  Receive Date: 20110712
  Receipt Date: 20110704
  Transmission Date: 20111222
  Serious: Yes (Other)
  Sender: FDA-Public Use
  Company Number: ES-002336

PATIENT
  Age: 77 Year
  Sex: Female
  Weight: 75 kg

DRUGS (6)
  1. TRAZODONE HCL [Suspect]
     Indication: DEPRESSION
     Dosage: 100 MG
  2. OMEPRAZOLE [Concomitant]
  3. GLYBURIDE [Concomitant]
  4. AMIODARONE HCL [Concomitant]
  5. CARBAMAZEPINE [Suspect]
     Dosage: 200 MG / 12 HOURS
  6. ESCITALOPRAM [Concomitant]

REACTIONS (15)
  - ATAXIA [None]
  - INSOMNIA [None]
  - IRRITABILITY [None]
  - DELUSION [None]
  - PSYCHOMOTOR RETARDATION [None]
  - HYPOTONIA [None]
  - AFFECTIVE DISORDER [None]
  - GAIT DISTURBANCE [None]
  - CONDITION AGGRAVATED [None]
  - TOXICITY TO VARIOUS AGENTS [None]
  - DRUG INTERACTION [None]
  - PSYCHOTIC DISORDER [None]
  - DECREASED APPETITE [None]
  - DEPRESSION [None]
  - ESSENTIAL TREMOR [None]
